FAERS Safety Report 4348171-X (Version None)
Quarter: 2004Q2

REPORT INFORMATION
  Report Type: 
  Country: None (occurrence: None)
  Receive Date: 20040422
  Receipt Date: 20040416
  Transmission Date: 20050107
  Serious: Yes (Other)
  Sender: FDA-Public Use
  Company Number: 2004209499US

PATIENT
  Age: 23 Year
  Sex: Female

DRUGS (1)
  1. DEPO-PROVERA [Suspect]

REACTIONS (1)
  - SMEAR CERVIX ABNORMAL [None]
